FAERS Safety Report 10156572 (Version 1)
Quarter: 2014Q2

REPORT INFORMATION
  Report Type: Spontaneous
  Country: US (occurrence: None)
  Receive Date: 20140506
  Receipt Date: 20140506
  Transmission Date: 20141212
  Serious: No
  Sender: FDA-Public Use
  Company Number: None

PATIENT
  Age: 13 Year
  Sex: Female

DRUGS (2)
  1. HUMIRA 40 MG ABBVIE [Suspect]
     Indication: CROHN^S DISEASE
     Dosage: Q14D
     Route: 058
     Dates: start: 201308, end: 20140425
  2. HUMIRA 40 MG ABBVIE [Suspect]
     Indication: COLITIS
     Dosage: Q14D
     Route: 058
     Dates: start: 201308, end: 20140425

REACTIONS (8)
  - Fatigue [None]
  - Dizziness [None]
  - Headache [None]
  - Pallor [None]
  - Weight decreased [None]
  - Haemorrhage [None]
  - Drug ineffective [None]
  - Red blood cell count decreased [None]
